FAERS Safety Report 17944106 (Version 1)
Quarter: 2020Q2

REPORT INFORMATION
  Report Type: Report from Study
  Country: GB (occurrence: GB)
  Receive Date: 20200625
  Receipt Date: 20200625
  Transmission Date: 20200714
  Serious: Yes (Hospitalization, Other)
  Sender: FDA-Public Use
  Company Number: GB-MYLANLABS-2020M1058155

PATIENT
  Sex: Male

DRUGS (4)
  1. PROMIXIN                           /00013206/ [Concomitant]
     Active Substance: COLISTIMETHATE SODIUM
     Dosage: UNK
  2. TOBI PODHALER [Suspect]
     Active Substance: TOBRAMYCIN
     Dosage: 112 MILLIGRAM, BID
     Dates: start: 2016
  3. PULMOZYME [Concomitant]
     Active Substance: DORNASE ALFA
     Dosage: UNK
  4. KALYDECO [Concomitant]
     Active Substance: IVACAFTOR
     Dosage: UNK

REACTIONS (1)
  - Pneumonia [Unknown]
